FAERS Safety Report 23551596 (Version 1)
Quarter: 2024Q1

REPORT INFORMATION
  Report Type: Spontaneous
  Country: US (occurrence: US)
  Receive Date: 20240222
  Receipt Date: 20240222
  Transmission Date: 20240410
  Serious: Yes (Other)
  Sender: FDA-Public Use
  Company Number: US-STRIDES ARCOLAB LIMITED-2023SP002242

PATIENT
  Age: 3 Year
  Sex: Female

DRUGS (4)
  1. ETOPOSIDE [Suspect]
     Active Substance: ETOPOSIDE
     Indication: Bone marrow conditioning regimen
     Dosage: 1500 MILLIGRAM/SQ. METER
     Route: 065
  2. ETOPOSIDE [Suspect]
     Active Substance: ETOPOSIDE
     Indication: Allogenic stem cell transplantation
  3. CYCLOPHOSPHAMIDE [Suspect]
     Active Substance: CYCLOPHOSPHAMIDE
     Indication: Bone marrow conditioning regimen
     Dosage: 60 MILLIGRAM/KILOGRAM
     Route: 065
  4. CYCLOPHOSPHAMIDE [Suspect]
     Active Substance: CYCLOPHOSPHAMIDE
     Indication: Allogenic stem cell transplantation

REACTIONS (3)
  - Cytomegalovirus infection [Recovered/Resolved]
  - Clostridium difficile infection [Recovered/Resolved]
  - Off label use [Unknown]
